FAERS Safety Report 8389127-X (Version None)
Quarter: 2012Q2

REPORT INFORMATION
  Report Type: 
  Country: None (occurrence: None)
  Receive Date: 20120528
  Receipt Date: 20120523
  Transmission Date: 20120825
  Serious: Yes (Hospitalization, Other)
  Sender: FDA-Public Use
  Company Number: PHEH2007US15443

PATIENT
  Sex: Female

DRUGS (28)
  1. CYMBALTA [Concomitant]
     Dosage: 30 MG, QD
     Dates: start: 20050316
  2. TAXOL [Concomitant]
     Dosage: 37.5 MG
  3. CYMBALTA [Concomitant]
     Dosage: 90 MG / DAILY
     Dates: start: 20050518
  4. GUAIFENESIN LA [Concomitant]
     Dosage: 600 MG, BID
     Dates: start: 20011115
  5. CYMBALTA [Concomitant]
     Dosage: 60 MG / DAILY
     Dates: start: 20050301, end: 20050518
  6. WELLBUTRIN [Concomitant]
     Dosage: 300 MG, QD
  7. OXYCODONE HCL [Concomitant]
  8. NAPROSYN [Concomitant]
  9. DECADRON [Concomitant]
  10. CEPHALEXIN [Concomitant]
     Dosage: 500 MG, BID
     Dates: start: 20011115
  11. DIFLUCAN [Concomitant]
  12. OXYCONTIN [Concomitant]
  13. KENALOG [Concomitant]
     Dosage: 10 MG
  14. OXYCODONE AND ACETAMINOPHEN [Concomitant]
  15. ANZEMET [Concomitant]
  16. TAXOTERE [Concomitant]
  17. GLUCOPHAGE [Concomitant]
  18. GLUCOTROL [Concomitant]
     Dosage: 10 MG
  19. TEMOVATE [Concomitant]
  20. POLYETHYLENE GLYCOL [Concomitant]
  21. METFORMIN HCL [Concomitant]
  22. ADRIAMYCIN PFS [Concomitant]
  23. ZOMETA [Suspect]
     Dosage: 4 MG, QMO
     Dates: start: 20020311
  24. PAXIL [Concomitant]
     Dosage: 37.5 MG
  25. PLAQUENIL [Concomitant]
  26. ADVAIR DISKUS 100/50 [Concomitant]
     Dosage: 1 DF
  27. ATIVAN [Concomitant]
  28. AMBIEN [Concomitant]

REACTIONS (46)
  - HYPERGLYCAEMIA [None]
  - SKIN NECROSIS [None]
  - OSTEOARTHRITIS [None]
  - HEMIPARESIS [None]
  - SINUSITIS [None]
  - DEPRESSION [None]
  - INJURY [None]
  - ANHEDONIA [None]
  - HAEMOGLOBIN DECREASED [None]
  - ALOPECIA [None]
  - CONJUNCTIVITIS [None]
  - OSTEOMYELITIS [None]
  - CARDIAC FAILURE CONGESTIVE [None]
  - DIABETES MELLITUS [None]
  - ENCEPHALOPATHY [None]
  - MENTAL STATUS CHANGES [None]
  - PNEUMONIA CRYPTOCOCCAL [None]
  - PULMONARY CONGESTION [None]
  - OSTEONECROSIS OF JAW [None]
  - PULMONARY FUNCTION TEST DECREASED [None]
  - ANXIETY [None]
  - HORDEOLUM [None]
  - NEUROPATHY PERIPHERAL [None]
  - SOFT TISSUE INFLAMMATION [None]
  - DIABETIC FOOT [None]
  - CELLULITIS [None]
  - BONE DISORDER [None]
  - HAEMATOCRIT DECREASED [None]
  - BLOOD ALKALINE PHOSPHATASE INCREASED [None]
  - MUSCULOSKELETAL STIFFNESS [None]
  - FOOT FRACTURE [None]
  - FALL [None]
  - DIABETIC NEUROPATHY [None]
  - PAIN [None]
  - PLAGUE [None]
  - SINUS TACHYCARDIA [None]
  - PROTEIN TOTAL INCREASED [None]
  - MUSCULAR WEAKNESS [None]
  - NASAL POLYPS [None]
  - HEADACHE [None]
  - INFLUENZA LIKE ILLNESS [None]
  - GINGIVAL EROSION [None]
  - BACK PAIN [None]
  - HYPERCHOLESTEROLAEMIA [None]
  - HYPERTENSION [None]
  - PAIN IN EXTREMITY [None]
